FAERS Safety Report 19657825 (Version 2)
Quarter: 2022Q2

REPORT INFORMATION
  Report Type: Spontaneous
  Country: US (occurrence: US)
  Receive Date: 20210804
  Receipt Date: 20220609
  Transmission Date: 20220720
  Serious: No
  Sender: FDA-Public Use
  Company Number: US-MYLANLABS-2021M1046522

PATIENT
  Sex: Female
  Weight: 63 kg

DRUGS (4)
  1. PERFOROMIST [Suspect]
     Active Substance: FORMOTEROL FUMARATE DIHYDRATE
     Indication: Asthma
     Dosage: 10MCG/ML,TWICE A DAY
     Route: 055
  2. BUDESONIDE [Concomitant]
     Active Substance: BUDESONIDE
     Dosage: UNK, BID
  3. DUPIXENT [Concomitant]
     Active Substance: DUPILUMAB
     Dosage: 300 MG/2ML SUBCUTANEOUSLY EVERY OTHER WEEK,
     Route: 058
  4. ALBUTEROL [Concomitant]
     Active Substance: ALBUTEROL
     Dosage: UNK

REACTIONS (1)
  - Product storage error [Not Recovered/Not Resolved]
